FAERS Safety Report 8677140 (Version 2)
Quarter: 2013Q4

REPORT INFORMATION
  Report Type: Spontaneous
  Country: FR (occurrence: FR)
  Receive Date: 20120723
  Receipt Date: 20131105
  Transmission Date: 20140711
  Serious: Yes (Hospitalization)
  Sender: FDA-Public Use
  Company Number: FR-009507513-1207FRA004214

PATIENT
  Age: 35 Year
  Sex: Female

DRUGS (5)
  1. TIENAM 500MG/500MG, POUDRE POUR PERFUSION [Suspect]
     Dosage: 1 G, BID
     Route: 042
     Dates: start: 20120301, end: 20120312
  2. TIENAM 500MG/500MG, POUDRE POUR PERFUSION [Suspect]
     Dosage: 1 G, BID
     Route: 042
     Dates: start: 20120209, end: 20120210
  3. VANCOMYCIN MYLAN [Suspect]
     Dosage: 1 G, UNK
     Dates: start: 20120209, end: 20120215
  4. VANCOMYCIN MYLAN [Suspect]
     Dosage: 1.5 G, BID
     Route: 042
     Dates: start: 20120216, end: 20120312
  5. TECHNETIUM TC 99M OXIDRONATE [Suspect]
     Indication: RADIOISOTOPE SCAN
     Dosage: 1 DF, ONCE
     Route: 042
     Dates: start: 20120309, end: 20120309

REACTIONS (1)
  - Acute generalised exanthematous pustulosis [Recovered/Resolved]
